FAERS Safety Report 7626543-5 (Version None)
Quarter: 2011Q3

REPORT INFORMATION
  Report Type: 
  Country: None (occurrence: None)
  Receive Date: 20110721
  Receipt Date: 20110714
  Transmission Date: 20111222
  Serious: Yes (Hospitalization)
  Sender: FDA-Public Use
  Company Number: US-GLAXOSMITHKLINE-A0931610A

PATIENT
  Age: 66 Year
  Sex: Female
  Weight: 112.3 kg

DRUGS (1)
  1. AVANDIA [Suspect]
     Indication: DIABETES MELLITUS
     Dosage: 8MG PER DAY
     Route: 048
     Dates: start: 20000717, end: 20060602

REACTIONS (4)
  - CORONARY ARTERY DISEASE [None]
  - RENAL FAILURE CHRONIC [None]
  - CARDIAC FAILURE CONGESTIVE [None]
  - HYPERTENSION [None]
